FAERS Safety Report 4664641-9 (Version None)
Quarter: 2005Q2

REPORT INFORMATION
  Report Type: 
  Country: None (occurrence: None)
  Receive Date: 20050518
  Receipt Date: 20050422
  Transmission Date: 20051028
  Serious: Yes (Hospitalization)
  Sender: FDA-Public Use
  Company Number: DE-ABBOTT-05P-062-0298562-00

PATIENT
  Sex: Male

DRUGS (4)
  1. KALETRA [Suspect]
     Indication: HIV INFECTION
     Route: 048
     Dates: start: 20050414
  2. COTRIM DS [Suspect]
     Indication: DRUG USE FOR UNKNOWN INDICATION
     Dosage: 160 MG / 800MG
     Route: 048
     Dates: end: 20050428
  3. REYATAZ [Concomitant]
     Indication: HIV INFECTION
     Route: 048
     Dates: start: 20050414
  4. FLUCONAZOLE [Concomitant]
     Indication: DRUG USE FOR UNKNOWN INDICATION
     Route: 048

REACTIONS (8)
  - ANAPHYLACTOID REACTION [None]
  - DRUG HYPERSENSITIVITY [None]
  - PERICARDIAL EFFUSION [None]
  - PYREXIA [None]
  - REFUSAL OF EXAMINATION [None]
  - RENAL FAILURE ACUTE [None]
  - SEPSIS [None]
  - TOOTH DISORDER [None]
